FAERS Safety Report 7455420-8 (Version None)
Quarter: 2011Q2

REPORT INFORMATION
  Report Type: 
  Country: None (occurrence: None)
  Receive Date: 20110503
  Receipt Date: 20100511
  Transmission Date: 20111010
  Serious: No
  Sender: FDA-Public Use
  Company Number: US-SANOFI-AVENTIS-2010SA025174

PATIENT
  Age: 55 Year
  Sex: Male
  Weight: 99.79 kg

DRUGS (3)
  1. APIDRA [Suspect]
     Indication: DIABETES MELLITUS
     Dosage: DOSE AS USED: 0-5 UNITS THREE TIMES A DAY AS NEEDED. SOMETIMES HE MIGHT NEED THE DOSE ONCE DAILY.
     Route: 058
     Dates: start: 20070101
  2. OPTICLICK [Suspect]
     Indication: DIABETES MELLITUS
     Dates: start: 20070101
  3. ORAL ANTIDIABETICS [Concomitant]

REACTIONS (1)
  - EXPIRED DRUG ADMINISTERED [None]
